FAERS Safety Report 7477785-3 (Version None)
Quarter: 2011Q2

REPORT INFORMATION
  Report Type: 
  Country: None (occurrence: None)
  Receive Date: 20110513
  Receipt Date: 20110506
  Transmission Date: 20111010
  Serious: Yes (Hospitalization, Other)
  Sender: FDA-Public Use
  Company Number: US-ELI_LILLY_AND_COMPANY-US201105002261

PATIENT
  Sex: Female
  Weight: 99.32 kg

DRUGS (2)
  1. BYETTA [Suspect]
     Dosage: UNK
     Route: 058
  2. BYETTA [Suspect]
     Dosage: 5 UG, BID
     Route: 058
     Dates: start: 20100201, end: 20100901

REACTIONS (3)
  - LIPASE INCREASED [None]
  - ABDOMINAL PAIN [None]
  - PANCREATITIS [None]
